FAERS Safety Report 10716476 (Version 1)
Quarter: 2015Q1

REPORT INFORMATION
  Report Type: Spontaneous
  Country: US (occurrence: None)
  Receive Date: 20150115
  Receipt Date: 20150115
  Transmission Date: 20150721
  Serious: Yes (Hospitalization)
  Sender: FDA-Public Use
  Company Number: None

PATIENT
  Age: 58 Year
  Sex: Male

DRUGS (2)
  1. CIPROFLOXACIN. [Suspect]
     Active Substance: CIPROFLOXACIN
     Indication: URINARY TRACT INFECTION
     Dosage: MG  BID  PO
     Route: 048
     Dates: start: 20141113, end: 20141123
  2. OXCARBAZEPINE. [Suspect]
     Active Substance: OXCARBAZEPINE
     Indication: BIPOLAR I DISORDER
     Dosage: MG  BID  PO
     Route: 048
     Dates: start: 20101018, end: 20141205

REACTIONS (6)
  - Tangentiality [None]
  - Hostility [None]
  - Depressed mood [None]
  - Agitation [None]
  - Delirium [None]
  - Drug screen positive [None]

NARRATIVE: CASE EVENT DATE: 20141210
